FAERS Safety Report 5669297-4 (Version None)
Quarter: 2008Q1

REPORT INFORMATION
  Report Type: 
  Country: None (occurrence: None)
  Receive Date: 20080317
  Receipt Date: 20080307
  Transmission Date: 20080703
  Serious: Yes (Other)
  Sender: FDA-Public Use
  Company Number: PHHY2008JP02277

PATIENT
  Age: 70 Year
  Sex: Female

DRUGS (2)
  1. CYCLOSPORINE [Suspect]
     Indication: MYELODYSPLASTIC SYNDROME
     Dosage: 150 MG/DAY
     Route: 065
  2. PREDNISOLONE [Concomitant]
     Indication: MYELODYSPLASTIC SYNDROME
     Dosage: 12.5-20 MG

REACTIONS (9)
  - ACANTHOLYSIS [None]
  - CONTUSION [None]
  - DIFFUSE PANBRONCHIOLITIS [None]
  - NAIL DISORDER [None]
  - NODULE [None]
  - SQUAMOUS CELL CARCINOMA [None]
  - SURGERY [None]
  - TRICHOPHYTOSIS [None]
  - ULCER [None]
